FAERS Safety Report 21931701 (Version 1)
Quarter: 2023Q1

REPORT INFORMATION
  Report Type: Report from Study
  Country: IT (occurrence: IT)
  Receive Date: 20230131
  Receipt Date: 20230131
  Transmission Date: 20230417
  Serious: Yes (Hospitalization)
  Sender: FDA-Public Use
  Company Number: IT-PFIZER INC-PV202200108012

PATIENT
  Age: 43 Year
  Sex: Female

DRUGS (1)
  1. CYTOTEC [Suspect]
     Active Substance: MISOPROSTOL
     Indication: Abortion induced
     Dosage: 200 UG 6X/DAY
     Route: 048
     Dates: start: 20180731, end: 20180731

REACTIONS (1)
  - Post abortion haemorrhage [Recovered/Resolved]

NARRATIVE: CASE EVENT DATE: 20180731
